FAERS Safety Report 16985830 (Version 1)
Quarter: 2019Q4

REPORT INFORMATION
  Report Type: Spontaneous
  Country: US (occurrence: US)
  Receive Date: 20190918
  Receipt Date: 20190918
  Transmission Date: 20200122
  Serious: Yes (Hospitalization)
  Sender: FDA-Public Use
  Company Number: None

PATIENT
  Sex: Female

DRUGS (7)
  1. CLONDINE [Concomitant]
     Active Substance: CLONIDINE
  2. FUROSEMIDE. [Concomitant]
     Active Substance: FUROSEMIDE
  3. AMIODARONE [Concomitant]
     Active Substance: AMIODARONE
  4. CARVEDILOL. [Concomitant]
     Active Substance: CARVEDILOL
  5. HYDRALAZINE [Concomitant]
     Active Substance: HYDRALAZINE HYDROCHLORIDE
  6. ELIQUIS [Concomitant]
     Active Substance: APIXABAN
  7. NEUPOGEN [Suspect]
     Active Substance: FILGRASTIM
     Indication: APLASTIC ANAEMIA
     Route: 058
     Dates: start: 20160206

REACTIONS (1)
  - Hospitalisation [None]
